FAERS Safety Report 9457398 (Version 1)
Quarter: 2013Q3

REPORT INFORMATION
  Report Type: Spontaneous
  Country: TR (occurrence: None)
  Receive Date: 20130812
  Receipt Date: 20130812
  Transmission Date: 20140515
  Serious: Yes (Other)
  Sender: FDA-Public Use
  Company Number: EUS-2013-00445

PATIENT
  Age: 48 Year
  Sex: Female

DRUGS (4)
  1. ASPARAGINASE [Suspect]
     Indication: ACUTE LYMPHOCYTIC LEUKAEMIA
     Dosage: 5000 IU/M2 ON DAYS 1-14
  2. VINCRISTINE (VINCRISTINE) (VINCIRSTINE) [Concomitant]
  3. DAUNORUBICIN [Concomitant]
  4. PREDNISONE (PREDNISONE) (PREDNISONE) [Concomitant]

REACTIONS (4)
  - Hepatitis fulminant [None]
  - Hepatic encephalopathy [None]
  - Hepatotoxicity [None]
  - Hepatic failure [None]
